FAERS Safety Report 13666394 (Version 1)
Quarter: 2017Q2

REPORT INFORMATION
  Report Type: Spontaneous
  Country: US (occurrence: US)
  Receive Date: 20170619
  Receipt Date: 20170619
  Transmission Date: 20170830
  Serious: No
  Sender: FDA-Public Use
  Company Number: US-ROCHE-1332523

PATIENT
  Sex: Female

DRUGS (3)
  1. XELODA [Suspect]
     Active Substance: CAPECITABINE
     Indication: HEPATIC CANCER
     Dosage: FOR 14 DAYS
     Route: 048
     Dates: start: 20130315
  2. XELODA [Suspect]
     Active Substance: CAPECITABINE
     Indication: ANAEMIA
     Dosage: FOR 14 OUT OF 21 DAYS
     Route: 048
     Dates: start: 20130517
  3. XELODA [Suspect]
     Active Substance: CAPECITABINE
     Indication: HEPATIC FUNCTION ABNORMAL
     Dosage: FOR 14 OUT OF 21 DAYS
     Route: 048
     Dates: start: 20130517

REACTIONS (4)
  - Weight decreased [Unknown]
  - Muscle spasms [Not Recovered/Not Resolved]
  - Gastrointestinal disorder [Unknown]
  - Decreased appetite [Unknown]
